FAERS Safety Report 10490732 (Version 1)
Quarter: 2014Q4

REPORT INFORMATION
  Report Type: Spontaneous
  Country: US (occurrence: US)
  Receive Date: 20141002
  Receipt Date: 20141002
  Transmission Date: 20150528
  Serious: No
  Sender: FDA-Public Use
  Company Number: US-GLAXOSMITHKLINE-A1040870A

PATIENT
  Age: 78 Year
  Sex: Male

DRUGS (13)
  1. INSULIN [Concomitant]
     Active Substance: INSULIN NOS
  2. LYRICA [Concomitant]
     Active Substance: PREGABALIN
  3. BABY ASPIRIN [Concomitant]
     Active Substance: ASPIRIN
  4. AVODART [Concomitant]
     Active Substance: DUTASTERIDE
  5. OMEPRAZOL [Concomitant]
     Active Substance: OMEPRAZOLE
  6. SYNTHROID [Concomitant]
     Active Substance: LEVOTHYROXINE SODIUM
  7. PROAIR HFA [Concomitant]
     Active Substance: ALBUTEROL SULFATE
  8. ADVAIR HFA [Suspect]
     Active Substance: FLUTICASONE PROPIONATE\SALMETEROL XINAFOATE
     Indication: PNEUMONIA
     Dosage: 1PUFF TWICE PER DAY
     Route: 055
     Dates: start: 201307
  9. SIMVASTATIN. [Concomitant]
     Active Substance: SIMVASTATIN
  10. CALCIUM [Concomitant]
     Active Substance: CALCIUM
  11. FLOMAX [Concomitant]
     Active Substance: TAMSULOSIN HYDROCHLORIDE
  12. FISH OIL [Concomitant]
     Active Substance: FISH OIL
  13. MUCINEX [Concomitant]
     Active Substance: GUAIFENESIN

REACTIONS (1)
  - Dysphonia [Not Recovered/Not Resolved]

NARRATIVE: CASE EVENT DATE: 201308
